FAERS Safety Report 11528647 (Version 1)
Quarter: 2015Q3

REPORT INFORMATION
  Report Type: Spontaneous
  Country: US (occurrence: None)
  Receive Date: 20150918
  Receipt Date: 20150918
  Transmission Date: 20151125
  Serious: Yes (Death, Hospitalization)
  Sender: FDA-Public Use
  Company Number: None

PATIENT
  Age: 90 Year
  Sex: Male
  Weight: 74 kg

DRUGS (1)
  1. RITUXIMAB (MOAB C2B8 ANTI CD20, CHIMERIC) [Suspect]
     Active Substance: RITUXIMAB
     Dates: end: 20150824

REACTIONS (7)
  - Laceration [None]
  - Fall [None]
  - Pneumonia [None]
  - Respiratory failure [None]
  - Brain injury [None]
  - Cardiac arrest [None]
  - Loss of consciousness [None]

NARRATIVE: CASE EVENT DATE: 20150902
